FAERS Safety Report 4761432-5 (Version None)
Quarter: 2005Q3

REPORT INFORMATION
  Report Type: 
  Country: None (occurrence: None)
  Receive Date: 20050901
  Receipt Date: 20050901
  Transmission Date: 20060218
  Serious: Yes (Life-Threatening, Hospitalization)
  Sender: FDA-Public Use
  Company Number: None

PATIENT
  Age: 72 Year
  Sex: Male
  Weight: 116 kg

DRUGS (10)
  1. AMIODARONE 200MG [Suspect]
     Indication: ATRIAL FIBRILLATION
     Dosage: AMIODARONE 200MG BID PO
     Route: 048
     Dates: start: 20050819, end: 20050824
  2. LIPITOR [Suspect]
     Indication: HYPERLIPIDAEMIA
     Dosage: 10MG QD PO
     Route: 048
  3. NITRO-BID [Concomitant]
  4. TENORETIC 100 [Concomitant]
  5. COUMADIN [Concomitant]
  6. K-DUR 10 [Concomitant]
  7. ALTACE [Concomitant]
  8. LIPITOR [Concomitant]
  9. ADVAIR DISKUS 100/50 [Concomitant]
  10. AMIODARONE [Concomitant]

REACTIONS (3)
  - ALANINE AMINOTRANSFERASE INCREASED [None]
  - ASPARTATE AMINOTRANSFERASE INCREASED [None]
  - BLOOD ALKALINE PHOSPHATASE INCREASED [None]
